FAERS Safety Report 20037258 (Version 2)
Quarter: 2021Q4

REPORT INFORMATION
  Report Type: Report from Study
  Country: US (occurrence: US)
  Receive Date: 20211105
  Receipt Date: 20211213
  Transmission Date: 20220304
  Serious: Yes (Hospitalization)
  Sender: FDA-Public Use
  Company Number: US-SANOFI-00488823

PATIENT
  Age: 80 Year
  Sex: Female

DRUGS (2)
  1. DUPILUMAB [Suspect]
     Active Substance: DUPILUMAB
     Indication: Asthma
     Dosage: 600 MG, 1X
     Route: 058
     Dates: start: 20200814, end: 20200814
  2. DUPILUMAB [Suspect]
     Active Substance: DUPILUMAB
     Dosage: 300 MG, QOW
     Route: 058
     Dates: start: 20200923, end: 20211207

REACTIONS (8)
  - COVID-19 [Unknown]
  - SARS-CoV-2 test positive [Unknown]
  - Vision blurred [Unknown]
  - Eye discharge [Unknown]
  - Eye pruritus [Unknown]
  - Diarrhoea [Not Recovered/Not Resolved]
  - Influenza [Recovering/Resolving]
  - Product use issue [Unknown]

NARRATIVE: CASE EVENT DATE: 20200814
